FAERS Safety Report 6990616-0 (Version None)
Quarter: 2010Q3

REPORT INFORMATION
  Report Type: 
  Country: None (occurrence: None)
  Receive Date: 20100916
  Receipt Date: 20100706
  Transmission Date: 20110219
  Serious: Yes (Other)
  Sender: FDA-Public Use
  Company Number: FR-PFIZER INC-2010083803

PATIENT
  Sex: Female

DRUGS (3)
  1. LYRICA [Suspect]
     Indication: NEURALGIA
     Dosage: 400 MG
  2. LYRICA [Suspect]
     Dosage: 100 MG, 1X/DAY (EVERY NOON)
  3. LYRICA [Suspect]
     Dosage: 50 MG PER DAY

REACTIONS (8)
  - HEADACHE [None]
  - INSOMNIA [None]
  - JOINT CONTRACTURE [None]
  - MUSCULOSKELETAL PAIN [None]
  - MYALGIA [None]
  - NAUSEA [None]
  - VERTIGO [None]
  - WITHDRAWAL SYNDROME [None]
